FAERS Safety Report 11942365 (Version 3)
Quarter: 2016Q1

REPORT INFORMATION
  Report Type: Spontaneous
  Country: US (occurrence: US)
  Receive Date: 20160125
  Receipt Date: 20160302
  Transmission Date: 20160526
  Serious: Yes (Other)
  Sender: FDA-Public Use
  Company Number: US-PFIZER INC-2016015857

PATIENT
  Age: 56 Year
  Sex: Female

DRUGS (5)
  1. GABAPENTIN. [Suspect]
     Active Substance: GABAPENTIN
     Indication: NEURALGIA
     Dosage: 300 MG, 4X/DAY
     Dates: start: 201506, end: 20150810
  2. CYMBALTA [Concomitant]
     Active Substance: DULOXETINE HYDROCHLORIDE
     Dosage: 60 MG, 1X/DAY
  3. HYDROCHLOROTHIAZIDE. [Concomitant]
     Active Substance: HYDROCHLOROTHIAZIDE
  4. HYDROCODONE [Concomitant]
     Active Substance: HYDROCODONE
     Dosage: UNK UNK, 4X/DAY
  5. FENOFIBRATE. [Concomitant]
     Active Substance: FENOFIBRATE
     Dosage: 120 MG, 1X/DAY

REACTIONS (3)
  - Product use issue [Recovered/Resolved]
  - Blood triglycerides increased [Recovered/Resolved]
  - Eczema eyelids [Recovered/Resolved]

NARRATIVE: CASE EVENT DATE: 201506
